FAERS Safety Report 11116081 (Version 1)
Quarter: 2015Q2

REPORT INFORMATION
  Report Type: Spontaneous
  Country: US (occurrence: None)
  Receive Date: 20150514
  Receipt Date: 20150514
  Transmission Date: 20150821
  Serious: Yes (Disabling)
  Sender: FDA-Public Use
  Company Number: None

PATIENT
  Age: 55 Year
  Sex: Female
  Weight: 92.08 kg

DRUGS (5)
  1. VITAMINS [Suspect]
     Active Substance: VITAMINS
  2. FLAXSEED [Suspect]
     Active Substance: FLAX SEED
  3. ONLY BLOOD PRESSURE MEDICINE AND MONITOR [Concomitant]
  4. NIFEDIPINE 90MG MYLAN [Suspect]
     Active Substance: NIFEDIPINE
     Indication: BLOOD PRESSURE
     Route: 048
  5. VITAMINS [Suspect]
     Active Substance: VITAMINS

REACTIONS (4)
  - Dizziness [None]
  - Vertigo [None]
  - Fatigue [None]
  - Malaise [None]

NARRATIVE: CASE EVENT DATE: 20150417
